FAERS Safety Report 7332763-X (Version None)
Quarter: 2011Q1

REPORT INFORMATION
  Report Type: 
  Country: None (occurrence: None)
  Receive Date: 20110304
  Receipt Date: 20100921
  Transmission Date: 20110831
  Serious: Yes (Death, Other)
  Sender: FDA-Public Use
  Company Number: US-BAYER-201032202NA

PATIENT
  Sex: Female
  Weight: 136 kg

DRUGS (4)
  1. YASMIN [Suspect]
     Indication: MENSTRUAL DISORDER
     Dosage: UNK UNK, UNK
     Route: 048
     Dates: start: 20040101, end: 20060101
  2. YAZ [Suspect]
     Indication: MENSTRUAL DISORDER
     Dosage: UNK UNK, UNK
     Route: 048
     Dates: start: 20040101, end: 20060101
  3. OCELLA [Suspect]
     Indication: PRODUCT USED FOR UNKNOWN INDICATION
     Route: 048
  4. UNKNOWN DRUG [Concomitant]

REACTIONS (11)
  - MYOCARDIAL INFARCTION [None]
  - BENIGN HEPATIC NEOPLASM [None]
  - HYPERTENSION [None]
  - HEPATIC ADENOMA [None]
  - THROMBOPHLEBITIS [None]
  - EMBOLISM ARTERIAL [None]
  - DEEP VEIN THROMBOSIS [None]
  - PULMONARY EMBOLISM [None]
  - CEREBRAL HAEMORRHAGE [None]
  - CEREBRAL THROMBOSIS [None]
  - GALLBLADDER DISORDER [None]
